FAERS Safety Report 15129987 (Version 1)
Quarter: 2018Q3

REPORT INFORMATION
  Report Type: Spontaneous
  Country: CN (occurrence: CN)
  Receive Date: 20180711
  Receipt Date: 20180711
  Transmission Date: 20181010
  Serious: Yes (Other)
  Sender: FDA-Public Use
  Company Number: CN-PFIZER INC-2018278163

PATIENT
  Age: 77 Year
  Sex: Male
  Weight: 60 kg

DRUGS (1)
  1. TYGACIL [Suspect]
     Active Substance: TIGECYCLINE
     Indication: LUNG INFECTION
     Dosage: 50 MG, 2X/DAY (Q12H)
     Route: 041
     Dates: start: 20180320, end: 20180321

REACTIONS (5)
  - Hallucination [Unknown]
  - Disorganised speech [Unknown]
  - Mental disorder [Recovering/Resolving]
  - Abnormal behaviour [Recovering/Resolving]
  - Diarrhoea [Recovering/Resolving]

NARRATIVE: CASE EVENT DATE: 20180320
